FAERS Safety Report 21202940 (Version 1)
Quarter: 2022Q3

REPORT INFORMATION
  Report Type: Spontaneous
  Country: US (occurrence: US)
  Receive Date: 20220811
  Receipt Date: 20220811
  Transmission Date: 20221027
  Serious: No
  Sender: FDA-Public Use
  Company Number: US-OTSUKA-2021_031980

PATIENT
  Sex: Female
  Weight: 68.04 kg

DRUGS (2)
  1. REXULTI [Suspect]
     Active Substance: BREXPIPRAZOLE
     Indication: Schizophrenia
     Dosage: 0.5 MG, TID
     Route: 048
     Dates: start: 2020, end: 2021
  2. REXULTI [Suspect]
     Active Substance: BREXPIPRAZOLE
     Indication: Depression

REACTIONS (5)
  - Illness [Recovered/Resolved]
  - Vulvovaginal dryness [Not Recovered/Not Resolved]
  - Vaginal cyst [Not Recovered/Not Resolved]
  - Obsessive-compulsive disorder [Recovered/Resolved]
  - Product use issue [Unknown]

NARRATIVE: CASE EVENT DATE: 20200101
